FAERS Safety Report 20512510 (Version 1)
Quarter: 2022Q1

REPORT INFORMATION
  Report Type: Spontaneous
  Country: JP (occurrence: JP)
  Receive Date: 20220224
  Receipt Date: 20220224
  Transmission Date: 20220424
  Serious: Yes (Death, Other)
  Sender: FDA-Public Use
  Company Number: JP-PFIZER INC-202200284592

PATIENT
  Sex: Female

DRUGS (3)
  1. SOLANAX [Suspect]
     Active Substance: ALPRAZOLAM
     Dosage: UNK
  2. ALPRAZOLAM [Suspect]
     Active Substance: ALPRAZOLAM
  3. TIAPRIDE [Suspect]
     Active Substance: TIAPRIDE
     Dosage: UNK
     Route: 048
     Dates: start: 20211002

REACTIONS (5)
  - Death [Fatal]
  - Pneumonia [Unknown]
  - Gait inability [Unknown]
  - Somnolence [Unknown]
  - Malaise [Unknown]
